FAERS Safety Report 9887998 (Version 1)
Quarter: 2014Q1

REPORT INFORMATION
  Report Type: Spontaneous
  Country: TR (occurrence: None)
  Receive Date: 20140207
  Receipt Date: 20140207
  Transmission Date: 20141002
  Serious: Yes (Other)
  Sender: FDA-Public Use
  Company Number: FK201400336

PATIENT
  Age: 77 Year
  Sex: Female

DRUGS (4)
  1. METHYLPREDNISOLONE [Suspect]
     Indication: TEMPORAL ARTERITIS
  2. ENOXAPARIN (ENOXAPARIN) [Concomitant]
  3. WARFARIN SODIUM (WARFARIN SODIUM) [Concomitant]
  4. CEFTRIAXONE (CEFTRIAZONE) [Concomitant]

REACTIONS (6)
  - Cytomegalovirus oesophagitis [None]
  - Pulmonary embolism [None]
  - Urinary tract infection [None]
  - Oesophageal candidiasis [None]
  - Oral candidiasis [None]
  - Blood lactate dehydrogenase increased [None]
